FAERS Safety Report 4925603-7 (Version None)
Quarter: 2006Q1

REPORT INFORMATION
  Report Type: 
  Country: None (occurrence: None)
  Receive Date: 20060228
  Receipt Date: 20050106
  Transmission Date: 20060701
  Serious: No
  Sender: FDA-Public Use
  Company Number: US-GLAXOSMITHKLINE-A0539664A

PATIENT
  Age: 53 Year
  Sex: Female

DRUGS (8)
  1. LAMICTAL [Suspect]
     Indication: EPILEPSY
     Dosage: 200MG THREE TIMES PER DAY
     Route: 048
     Dates: start: 20020501
  2. FOSAMAX [Concomitant]
  3. KEPPRA [Concomitant]
  4. TEGRETOL [Concomitant]
  5. PREVACID [Concomitant]
  6. ZANTAC [Concomitant]
  7. ZYRTEC [Concomitant]
  8. CALCIFEROL [Concomitant]

REACTIONS (1)
  - PH URINE INCREASED [None]
